FAERS Safety Report 9227698 (Version 1)
Quarter: 2013Q2

REPORT INFORMATION
  Report Type: Spontaneous
  Country: FR (occurrence: FR)
  Receive Date: 20130412
  Receipt Date: 20130412
  Transmission Date: 20140414
  Serious: Yes (Other)
  Sender: FDA-Public Use
  Company Number: FR-BRISTOL-MYERS SQUIBB COMPANY-18753426

PATIENT
  Age: 48 Year
  Sex: Female

DRUGS (3)
  1. REYATAZ CAPS 300 MG [Suspect]
     Indication: HIV INFECTION CDC CATEGORY A2
     Route: 048
     Dates: start: 20111031, end: 20130111
  2. TRUVADA [Suspect]
     Indication: HIV INFECTION CDC CATEGORY A2
     Dosage: 1 DF: 1 TAB, TRUVADA 200MG/245MG
     Route: 048
     Dates: start: 20111031, end: 20130111
  3. NORVIR [Suspect]
     Route: 048
     Dates: start: 20111031

REACTIONS (4)
  - Renal failure acute [Recovered/Resolved]
  - Nephrolithiasis [Recovered/Resolved]
  - Overdose [Unknown]
  - Dehydration [Unknown]
